FAERS Safety Report 19364828 (Version 2)
Quarter: 2021Q4

REPORT INFORMATION
  Report Type: Spontaneous
  Country: DE (occurrence: DE)
  Receive Date: 20210603
  Receipt Date: 20211207
  Transmission Date: 20220304
  Serious: Yes (Hospitalization)
  Sender: FDA-Public Use
  Company Number: DE-AMGEN-DEUNI2021078385

PATIENT
  Age: 54 Year
  Sex: Male
  Weight: 110 kg

DRUGS (8)
  1. LEUCOVORIN [Suspect]
     Active Substance: LEUCOVORIN
     Indication: Colorectal cancer metastatic
     Dosage: 800 MILLIGRAM
     Route: 065
     Dates: start: 20201109
  2. IRINOTECAN [Suspect]
     Active Substance: IRINOTECAN
     Indication: Colorectal cancer metastatic
     Dosage: 360 MILLIGRAM
     Route: 065
     Dates: start: 20201109
  3. VECTIBIX [Suspect]
     Active Substance: PANITUMUMAB
     Indication: Colorectal cancer
     Dosage: 660 MILLIGRAM
     Route: 042
     Dates: start: 20201109
  4. VECTIBIX [Suspect]
     Active Substance: PANITUMUMAB
     Dosage: 650 MILLIGRAM
     Route: 042
     Dates: start: 20201221
  5. VECTIBIX [Suspect]
     Active Substance: PANITUMUMAB
     Dosage: 630 MILLIGRAM
     Route: 042
     Dates: start: 20210208
  6. FLUOROURACIL [Suspect]
     Active Substance: FLUOROURACIL
     Indication: Colorectal cancer metastatic
     Dosage: 4800 MILLIGRAM
     Route: 042
     Dates: start: 20201109
  7. GRANISETRON [Concomitant]
     Active Substance: GRANISETRON
     Indication: Premedication
     Dosage: 3 MILLIGRAM (3 MILLIGRAM, PER CYCLE)
     Route: 042
     Dates: start: 20201109
  8. DEXAMETHASONE [Concomitant]
     Active Substance: DEXAMETHASONE
     Indication: Premedication
     Dosage: 8 MILLIGRAM (8 MILLIGRAM, PER CYCLE)
     Route: 042
     Dates: start: 20201109

REACTIONS (1)
  - General physical health deterioration [Recovered/Resolved]

NARRATIVE: CASE EVENT DATE: 20210323
